FAERS Safety Report 13617863 (Version 1)
Quarter: 2017Q2

REPORT INFORMATION
  Report Type: Spontaneous
  Country: US (occurrence: US)
  Receive Date: 20170606
  Receipt Date: 20170606
  Transmission Date: 20170830
  Serious: No
  Sender: FDA-Public Use
  Company Number: US-TARO-2017TAR00095

PATIENT
  Age: 7 Month
  Sex: Female

DRUGS (1)
  1. FEVERALL [Suspect]
     Active Substance: ACETAMINOPHEN
     Indication: PYREXIA
     Dosage: UNK UNK, TWICE
     Route: 054
     Dates: start: 20170211, end: 20170211

REACTIONS (4)
  - Proctalgia [Unknown]
  - Drug ineffective [Unknown]
  - Perianal erythema [Unknown]
  - Rash [Unknown]

NARRATIVE: CASE EVENT DATE: 20170211
